FAERS Safety Report 23623480 (Version 2)
Quarter: 2024Q2

REPORT INFORMATION
  Report Type: Spontaneous
  Country: US (occurrence: US)
  Receive Date: 20240312
  Receipt Date: 20240416
  Transmission Date: 20240716
  Serious: Yes (Hospitalization)
  Sender: FDA-Public Use
  Company Number: US-ABBVIE-5672910

PATIENT
  Sex: Male

DRUGS (1)
  1. HUMIRA [Suspect]
     Active Substance: ADALIMUMAB
     Indication: Colitis ulcerative
     Dosage: FORM STRENGTH: 40 MILLIGRAM
     Route: 058
     Dates: start: 20210915

REACTIONS (5)
  - Hypoaesthesia oral [Recovered/Resolved]
  - Poor quality product administered [Unknown]
  - Swelling face [Unknown]
  - Hypoaesthesia [Recovered/Resolved]
  - Liquid product physical issue [Unknown]
